FAERS Safety Report 12621467 (Version 1)
Quarter: 2016Q3

REPORT INFORMATION
  Report Type: Spontaneous
  Country: DE (occurrence: DE)
  Receive Date: 20160804
  Receipt Date: 20160804
  Transmission Date: 20161109
  Serious: Yes (Other)
  Sender: FDA-Public Use
  Company Number: DE-TEVA-678708GER

PATIENT
  Age: 72 Year
  Sex: Male

DRUGS (11)
  1. LYRICA [Concomitant]
     Active Substance: PREGABALIN
     Dosage: IN THE MORNING
  2. TAMSULOSIN 0.4 [Concomitant]
     Dosage: IN THE EVENING
  3. PRAMIPEXOL 1.10 MG [Suspect]
     Active Substance: PRAMIPEXOLE
     Dosage: IN THE EVENING
  4. PANTOPRAZOLE SODIUM. [Concomitant]
     Active Substance: PANTOPRAZOLE SODIUM
  5. VITAMIN D3 [Concomitant]
     Active Substance: CHOLECALCIFEROL
  6. LYRICA [Concomitant]
     Active Substance: PREGABALIN
     Dosage: IN THE EVENING
  7. EISENTABLETTE 50 MG [Concomitant]
     Dosage: 100 MILLIGRAM DAILY;
  8. TORASEMID 10 MG [Concomitant]
  9. RESTEX 100 MG TABLETTE [Concomitant]
     Dosage: IN THE EVENING
  10. RESTEX 100 MG HARTKAPSEL [Concomitant]
     Dosage: IN THE EVENING
  11. VITAMIN B12 [Concomitant]
     Active Substance: CYANOCOBALAMIN
     Dosage: EVERY FIRST DAY ON THE MONTH

REACTIONS (5)
  - Dyspnoea [Unknown]
  - Gait disturbance [Unknown]
  - Peripheral swelling [Unknown]
  - Dysstasia [Unknown]
  - Pain in extremity [Unknown]

NARRATIVE: CASE EVENT DATE: 2015
